FAERS Safety Report 8688797 (Version 3)
Quarter: 2013Q3

REPORT INFORMATION
  Report Type: Report from Study
  Country: IT (occurrence: IT)
  Receive Date: 20120727
  Receipt Date: 20130702
  Transmission Date: 20140515
  Serious: Yes (Life-Threatening, Hospitalization)
  Sender: FDA-Public Use
  Company Number: IT-BAXTER-2012BAX012045

PATIENT
  Age: 66 Year
  Sex: Female
  Weight: 43 kg

DRUGS (7)
  1. ENDOXAN BAXTER [Suspect]
     Indication: DIFFUSE LARGE B-CELL LYMPHOMA
     Route: 042
     Dates: start: 20120308, end: 20120613
  2. ENDOXAN BAXTER [Suspect]
     Route: 042
     Dates: start: 20120524
  3. VINCRISTINE [Suspect]
     Indication: DIFFUSE LARGE B-CELL LYMPHOMA
     Route: 042
     Dates: start: 20120308, end: 20120613
  4. VINCRISTINE [Suspect]
     Route: 042
     Dates: start: 20120524
  5. DOXORUBICIN [Suspect]
     Indication: DIFFUSE LARGE B-CELL LYMPHOMA
     Route: 042
     Dates: start: 20120308, end: 20120613
  6. DOXORUBICIN [Suspect]
     Route: 042
     Dates: start: 20120524
  7. PREDNISONE [Suspect]
     Indication: DIFFUSE LARGE B-CELL LYMPHOMA
     Route: 048
     Dates: start: 20120307, end: 20120613

REACTIONS (2)
  - Meningitis [Recovered/Resolved]
  - Meningitis [Not Recovered/Not Resolved]
